FAERS Safety Report 13928018 (Version 2)
Quarter: 2017Q3

REPORT INFORMATION
  Report Type: Spontaneous
  Country: CH (occurrence: CH)
  Receive Date: 20170901
  Receipt Date: 20170907
  Transmission Date: 20171127
  Serious: Yes (Hospitalization, Other)
  Sender: FDA-Public Use
  Company Number: CH-PFIZER INC-2017378973

PATIENT
  Age: 21 Year
  Sex: Male

DRUGS (3)
  1. MEFENACID [Suspect]
     Active Substance: MEFENAMIC ACID
     Indication: PAIN IN JAW
     Dosage: 1.500 MG (1-1-1-0) FOR SEVEN DAYS
     Route: 048
     Dates: end: 20170226
  2. EUTHYROX [Concomitant]
     Active Substance: LEVOTHYROXINE SODIUM
     Dosage: UNK
  3. PANTOZOL [Suspect]
     Active Substance: PANTOPRAZOLE SODIUM
     Dosage: UNK
     Route: 065
     Dates: end: 20170226

REACTIONS (2)
  - Proteinuria [Recovered/Resolved]
  - Acute kidney injury [Recovered/Resolved]

NARRATIVE: CASE EVENT DATE: 20170226
